FAERS Safety Report 12852384 (Version 1)
Quarter: 2016Q4

REPORT INFORMATION
  Report Type: Spontaneous
  Country: US (occurrence: US)
  Receive Date: 20161015
  Receipt Date: 20161015
  Transmission Date: 20170207
  Serious: Yes (Disabling, Other)
  Sender: FDA-Public Use
  Company Number: None

PATIENT
  Age: 37 Year
  Sex: Male
  Weight: 58.5 kg

DRUGS (4)
  1. HYOSCYAMINE .125MG SUBLINGUAL TA [Suspect]
     Active Substance: HYOSCYAMINE
     Indication: IRRITABLE BOWEL SYNDROME
     Dosage: ?          QUANTITY:1 TABLET(S);?
     Dates: start: 20160625, end: 20160925
  2. FISH OIL [Concomitant]
     Active Substance: FISH OIL
  3. METHSCOPOLAMINE [Concomitant]
     Active Substance: METHSCOPOLAMINE\METHSCOPOLAMINE BROMIDE
  4. VITAMIN D [Concomitant]
     Active Substance: CHOLECALCIFEROL

REACTIONS (4)
  - Heart rate increased [None]
  - Dehydration [None]
  - Vision blurred [None]
  - Mydriasis [None]

NARRATIVE: CASE EVENT DATE: 20160919
